FAERS Safety Report 21134054 (Version 2)
Quarter: 2022Q4

REPORT INFORMATION
  Report Type: Spontaneous
  Country: NZ (occurrence: NZ)
  Receive Date: 20220726
  Receipt Date: 20221010
  Transmission Date: 20230113
  Serious: Yes (Death, Other)
  Sender: FDA-Public Use
  Company Number: NZ-MYLANLABS-2022M1080935

PATIENT
  Age: 72 Year
  Sex: Female

DRUGS (6)
  1. CLOZARIL [Suspect]
     Active Substance: CLOZAPINE
     Indication: Schizophrenia
     Dosage: UNK
     Route: 048
     Dates: start: 20200626, end: 20220501
  2. CLOZARIL [Suspect]
     Active Substance: CLOZAPINE
     Indication: Dementia with Lewy bodies
     Dosage: 25 MILLIGRAM, 5 PM
     Route: 048
     Dates: start: 202006
  3. CLOZARIL [Suspect]
     Active Substance: CLOZAPINE
     Indication: Psychotic disorder
     Dosage: 50 MILLIGRAM, HS (NOCTE), (75 MG)
     Route: 048
     Dates: start: 202006
  4. LITHIUM [Concomitant]
     Active Substance: LITHIUM
     Dosage: 400 MILLIGRAM, HS (400 MG, ONE NOCTE)
     Route: 065
  5. NORTRIPTYLINE [Concomitant]
     Active Substance: NORTRIPTYLINE
     Dosage: 50 MILLIGRAM, HS (50 MG, ONE NOCTE)
     Route: 065
  6. LEVOTHYROXINE [Concomitant]
     Active Substance: LEVOTHYROXINE
     Dosage: 100 MICROGRAM, AM (100 MCG, ONE MANE)
     Route: 065

REACTIONS (2)
  - Pulmonary embolism [Fatal]
  - COVID-19 [Fatal]

NARRATIVE: CASE EVENT DATE: 20220501
